FAERS Safety Report 7067900-8 (Version None)
Quarter: 2010Q4

REPORT INFORMATION
  Report Type: 
  Country: None (occurrence: None)
  Receive Date: 20101028
  Receipt Date: 20101018
  Transmission Date: 20110411
  Serious: Yes (Other)
  Sender: FDA-Public Use
  Company Number: US-BAXTER-2010BH025759

PATIENT
  Age: 48 Year
  Sex: Female
  Weight: 54 kg

DRUGS (6)
  1. GAMMAGARD LIQUID [Suspect]
     Indication: NEUROPATHY PERIPHERAL
     Route: 042
     Dates: start: 20100928, end: 20100928
  2. GAMMAGARD LIQUID [Suspect]
     Indication: OFF LABEL USE
     Route: 042
     Dates: start: 20100928, end: 20100928
  3. GAMMAGARD LIQUID [Suspect]
     Route: 042
     Dates: start: 20081001
  4. GAMMAGARD LIQUID [Suspect]
     Route: 042
     Dates: start: 20081001
  5. APAP TAB [Concomitant]
     Indication: PREMEDICATION
     Dates: start: 20100929, end: 20100929
  6. DIPHENHYDRAMINE HCL [Concomitant]
     Indication: PREMEDICATION
     Route: 048
     Dates: start: 20100929, end: 20100929

REACTIONS (1)
  - HAEMOLYSIS [None]
